FAERS Safety Report 10242584 (Version 1)
Quarter: 2014Q2

REPORT INFORMATION
  Report Type: Spontaneous
  Country: IT (occurrence: IT)
  Receive Date: 20140617
  Receipt Date: 20140617
  Transmission Date: 20141212
  Serious: Yes (Hospitalization)
  Sender: FDA-Public Use
  Company Number: PHHY2014IT072543

PATIENT
  Sex: Male

DRUGS (1)
  1. CLOZAPIN HEXAL [Suspect]
     Indication: DELIRIUM
     Dosage: 100 MG, QD
     Route: 048
     Dates: start: 20140505, end: 20140509

REACTIONS (1)
  - Psychotic disorder [Unknown]
